FAERS Safety Report 9391287 (Version 7)
Quarter: 2014Q3

REPORT INFORMATION
  Report Type: Spontaneous
  Country: US (occurrence: US)
  Receive Date: 20130709
  Receipt Date: 20140731
  Transmission Date: 20150326
  Serious: No
  Sender: FDA-Public Use
  Company Number: US-009507513-1307USA002956

PATIENT
  Sex: Male
  Weight: 78.91 kg

DRUGS (1)
  1. PROPECIA [Suspect]
     Active Substance: FINASTERIDE
     Indication: ALOPECIA
     Dosage: 1 MG, UNK
     Route: 048
     Dates: start: 20051021, end: 200608

REACTIONS (27)
  - Suicidal ideation [Not Recovered/Not Resolved]
  - Seborrhoeic dermatitis [Unknown]
  - Fatigue [Unknown]
  - Testicular pain [Unknown]
  - Erectile dysfunction [Not Recovered/Not Resolved]
  - Libido decreased [Unknown]
  - Deformity [Unknown]
  - Hypogonadism male [Unknown]
  - Testicular disorder [Unknown]
  - Sleep disorder [Unknown]
  - Acne [Unknown]
  - Skin neoplasm excision [Unknown]
  - Hyperprolactinaemia [Unknown]
  - Metabolic syndrome [Unknown]
  - Sexual dysfunction [Unknown]
  - Sensory loss [Unknown]
  - Skin infection [Unknown]
  - Pituitary tumour [Unknown]
  - Male genital atrophy [Unknown]
  - Blood testosterone decreased [Unknown]
  - Depression [Not Recovered/Not Resolved]
  - Cognitive disorder [Not Recovered/Not Resolved]
  - Hypertension [Unknown]
  - Melanocytic naevus [Unknown]
  - Anxiety [Not Recovered/Not Resolved]
  - Testicular cyst [Unknown]
  - Prostatitis [Not Recovered/Not Resolved]

NARRATIVE: CASE EVENT DATE: 200510
